FAERS Safety Report 8950860 (Version 1)
Quarter: 2012Q4

REPORT INFORMATION
  Report Type: Spontaneous
  Country: US (occurrence: None)
  Receive Date: 20121123
  Receipt Date: 20121123
  Transmission Date: 20130627
  Serious: Yes (Hospitalization)
  Sender: FDA-Public Use
  Company Number: 2012033986

PATIENT
  Age: 31 Year
  Sex: Female

DRUGS (5)
  1. IMMUNE GLOBULIN HUMAN [Suspect]
     Indication: NEUROMYELITIS OPTICA
     Route: 042
  2. CORTICOSTEROID [Suspect]
  3. CYCLOPHOSPHAMIDE [Concomitant]
  4. AZATHIOPRINE [Concomitant]
  5. PREDNISONE [Concomitant]

REACTIONS (4)
  - Neuromyelitis optica [None]
  - Urinary incontinence [None]
  - Off label use [None]
  - Muscle spasms [None]
